FAERS Safety Report 5537954-6 (Version None)
Quarter: 2007Q4

REPORT INFORMATION
  Report Type: 
  Country: None (occurrence: None)
  Receive Date: 20071207
  Receipt Date: 20071127
  Transmission Date: 20080405
  Serious: Yes (Hospitalization)
  Sender: FDA-Public Use
  Company Number: RO-PFIZER INC-2007099716

PATIENT
  Age: 44 Year
  Sex: Female

DRUGS (5)
  1. ATORVASTATIN [Suspect]
     Indication: CARDIOVASCULAR EVENT PROPHYLAXIS
     Route: 048
     Dates: start: 20071016, end: 20071121
  2. INDAPAMIDE [Concomitant]
     Route: 048
  3. AMLODIPINE [Concomitant]
     Route: 048
  4. PERINDOPRIL [Concomitant]
     Route: 048
  5. DIOSMIN [Concomitant]
     Route: 048

REACTIONS (5)
  - BLOOD CREATINE PHOSPHOKINASE INCREASED [None]
  - BLOOD CREATINE PHOSPHOKINASE MB INCREASED [None]
  - MYALGIA [None]
  - RHABDOMYOLYSIS [None]
  - TRANSAMINASES INCREASED [None]
